FAERS Safety Report 9512968 (Version 2)
Quarter: 2013Q3

REPORT INFORMATION
  Report Type: Spontaneous
  Country: US (occurrence: US)
  Receive Date: 20130910
  Receipt Date: 20130910
  Transmission Date: 20140515
  Serious: Yes (Other)
  Sender: FDA-Public Use
  Company Number: US-CELGENEUS-163-21880-13033396

PATIENT
  Age: 64 Year
  Sex: Female
  Weight: 81.6 kg

DRUGS (1)
  1. REVLIMID [Suspect]
     Indication: PLASMA CELL MYELOMA
     Dosage: 25 MILLIGRAM
     Route: 048
     Dates: start: 20130129

REACTIONS (2)
  - Ankle fracture [Recovered/Resolved]
  - Deep vein thrombosis [Recovered/Resolved]
